FAERS Safety Report 5614305-X (Version None)
Quarter: 2008Q1

REPORT INFORMATION
  Report Type: 
  Country: None (occurrence: None)
  Receive Date: 20080205
  Receipt Date: 20080130
  Transmission Date: 20080703
  Serious: Yes (Hospitalization)
  Sender: FDA-Public Use
  Company Number: US-BAXTER-2008BH001003

PATIENT
  Age: 34 Year
  Sex: Female

DRUGS (6)
  1. ATIVAN [Suspect]
     Indication: ANXIETY
     Route: 041
     Dates: start: 20070531, end: 20070531
  2. CYTOXAN [Suspect]
     Indication: MULTIPLE SCLEROSIS
     Route: 042
  3. REBIF [Suspect]
     Indication: MULTIPLE SCLEROSIS
     Route: 058
     Dates: start: 20040714, end: 20070530
  4. REBIF [Suspect]
     Route: 058
     Dates: start: 20070618, end: 20070901
  5. CORTICOSTEROID NOS [Concomitant]
     Indication: MULTIPLE SCLEROSIS RELAPSE
     Dosage: DOSE UNIT:UNKNOWN
     Route: 042
  6. CYTOXAN [Concomitant]
     Indication: MULTIPLE SCLEROSIS RELAPSE
     Dosage: DOSE UNIT:UNKNOWN
     Route: 041

REACTIONS (3)
  - NEUTROPENIA [None]
  - OVERDOSE [None]
  - SOMNOLENCE [None]
